FAERS Safety Report 6299948-5 (Version None)
Quarter: 2009Q3

REPORT INFORMATION
  Report Type: 
  Country: None (occurrence: None)
  Receive Date: 20090806
  Receipt Date: 20090731
  Transmission Date: 20100115
  Serious: Yes (Other)
  Sender: FDA-Public Use
  Company Number: BR-ASTRAZENECA-2009UW21648

PATIENT
  Age: 11 Year
  Sex: Male
  Weight: 46 kg

DRUGS (6)
  1. SYMBICORT [Suspect]
     Indication: ASTHMA
     Dosage: 160/4.5 MCG DAILY
     Route: 055
     Dates: start: 20080101, end: 20090701
  2. SYMBICORT [Suspect]
     Dosage: 160/4.5 MCG TWICE DAILY
     Route: 055
     Dates: start: 20090701
  3. ALLEGRA [Concomitant]
     Indication: HYPERSENSITIVITY
     Route: 048
  4. FLUIMARI [Concomitant]
     Indication: RHINITIS
     Route: 045
  5. PATANOL S [Concomitant]
     Indication: EYE IRRITATION
     Route: 047
  6. NASALEZE [Concomitant]
     Indication: RHINITIS
     Dosage: TWO TO FOUR TIMES A DAY
     Route: 045
     Dates: start: 20090401

REACTIONS (5)
  - COUGH [None]
  - GROWTH RETARDATION [None]
  - NASAL CONGESTION [None]
  - NASOPHARYNGITIS [None]
  - RHINITIS [None]
